FAERS Safety Report 8884791 (Version 4)
Quarter: 2013Q1

REPORT INFORMATION
  Report Type: Spontaneous
  Country: US (occurrence: US)
  Receive Date: 20121102
  Receipt Date: 20130218
  Transmission Date: 20140127
  Serious: Yes (Hospitalization, Disabling, Other)
  Sender: FDA-Public Use
  Company Number: US-009507513-1210USA011094

PATIENT
  Sex: Female
  Weight: 49.43 kg

DRUGS (6)
  1. FOSAMAX [Suspect]
     Indication: OSTEOPENIA
     Dosage: 70 MG, QW
     Route: 048
     Dates: start: 20040922, end: 200605
  2. CALCIUM (UNSPECIFIED) [Concomitant]
     Dosage: UNK
     Route: 048
     Dates: start: 2002, end: 2005
  3. CELLCEPT [Concomitant]
     Indication: MULTIPLE SCLEROSIS
     Dosage: UNK
     Dates: start: 2004
  4. BACLOFEN [Concomitant]
     Indication: MULTIPLE SCLEROSIS
     Dosage: UNK
     Dates: start: 2004
  5. PATANOL [Concomitant]
     Indication: HYPERSENSITIVITY
     Dosage: UNK
     Dates: start: 2006
  6. PANDEL [Concomitant]
     Indication: HYPERSENSITIVITY
     Dosage: UNK
     Dates: start: 2006

REACTIONS (10)
  - Femur fracture [Unknown]
  - Open reduction of fracture [Not Recovered/Not Resolved]
  - Low turnover osteopathy [Not Recovered/Not Resolved]
  - Hand fracture [Recovered/Resolved]
  - Depression [Unknown]
  - Nasopharyngitis [Unknown]
  - Inflammation [Unknown]
  - Infection [Unknown]
  - Influenza [Unknown]
  - Gastrointestinal disorder [Unknown]
